FAERS Safety Report 5213019-8 (Version None)
Quarter: 2007Q1

REPORT INFORMATION
  Report Type: 
  Country: None (occurrence: None)
  Receive Date: 20070117
  Receipt Date: 20070108
  Transmission Date: 20070707
  Serious: Yes (Hospitalization)
  Sender: FDA-Public Use
  Company Number: S07-USA-00073-01

PATIENT
  Age: 19 Year
  Sex: Female

DRUGS (10)
  1. LEXAPRO [Suspect]
     Indication: ANXIETY
     Dates: start: 20040101
  2. LEXAPRO [Suspect]
     Indication: ANXIETY
     Dates: start: 20040101
  3. LEXAPRO [Suspect]
     Indication: ANXIETY
     Dates: end: 20050101
  4. ADDERALL XR 10 [Suspect]
  5. DEXTROSTAT [Suspect]
  6. ADVIL [Suspect]
     Indication: OVERDOSE
     Dates: start: 20040101, end: 20040101
  7. LAMICTAL [Concomitant]
  8. PROVIGIL [Concomitant]
  9. WELLBUTRIN [Concomitant]
  10. CYMBALTA [Concomitant]

REACTIONS (11)
  - ABDOMINAL PAIN UPPER [None]
  - ANXIETY [None]
  - BIPOLAR II DISORDER [None]
  - DIZZINESS [None]
  - FEELING ABNORMAL [None]
  - NAUSEA [None]
  - OVERDOSE [None]
  - PANIC ATTACK [None]
  - PARANOIA [None]
  - RESTLESSNESS [None]
  - SUICIDAL IDEATION [None]
